FAERS Safety Report 5268932-2 (Version None)
Quarter: 2007Q1

REPORT INFORMATION
  Report Type: 
  Country: None (occurrence: None)
  Receive Date: 20061212
  Receipt Date: 20050822
  Transmission Date: 20070707
  Serious: Yes (Hospitalization, Disabling)
  Sender: FDA-Public Use
  Company Number: 2005UW12424

PATIENT
  Age: 89 Year
  Sex: Male

DRUGS (4)
  1. ZOLADEX [Suspect]
     Indication: PROSTATE CANCER
     Dosage: 10.8 MG SQ
     Route: 058
     Dates: start: 19960301, end: 20050211
  2. PLENAXIS [Suspect]
     Indication: PROSTATE CANCER
     Dosage: 100 MG IM
     Route: 030
     Dates: start: 20050426
  3. PLAVIX [Concomitant]
  4. PERCOCET [Concomitant]

REACTIONS (1)
  - CEREBROVASCULAR ACCIDENT [None]
